FAERS Safety Report 5592606-1 (Version None)
Quarter: 2008Q1

REPORT INFORMATION
  Report Type: 
  Country: None (occurrence: None)
  Receive Date: 20080114
  Receipt Date: 20080104
  Transmission Date: 20080703
  Serious: Yes (Other)
  Sender: FDA-Public Use
  Company Number: 2007SP024701

PATIENT
  Sex: Female

DRUGS (2)
  1. DR. SCHOLL'S LIQUID CORN/CALLUS REMOVER                 (17 PCT) [Suspect]
     Indication: DRUG USE FOR UNKNOWN INDICATION
     Dosage: TOP
     Route: 061
  2. EPSOM SALT [Suspect]
     Indication: DRUG USE FOR UNKNOWN INDICATION

REACTIONS (5)
  - CELLULITIS [None]
  - INSOMNIA [None]
  - PAIN IN EXTREMITY [None]
  - STREPTOCOCCAL INFECTION [None]
  - ULCER [None]
